FAERS Safety Report 8887280 (Version 2)
Quarter: 2013Q2

REPORT INFORMATION
  Report Type: Report from Study
  Country: JP (occurrence: JP)
  Receive Date: 20121105
  Receipt Date: 20130415
  Transmission Date: 20140414
  Serious: Yes (Other)
  Sender: FDA-Public Use
  Company Number: JP-BAXTER-2012BH007735

PATIENT
  Age: 19 Year
  Sex: Male
  Weight: 45 kg

DRUGS (10)
  1. FEIBA FOR INJECTION 1000 [Suspect]
     Indication: HAEMORRHAGE
     Route: 042
     Dates: start: 20110720, end: 20110721
  2. FEIBA FOR INJECTION 1000 [Suspect]
     Indication: MUSCLE HAEMORRHAGE
     Route: 042
     Dates: start: 20110722, end: 20110728
  3. FEIBA FOR INJECTION 1000 [Suspect]
     Route: 042
     Dates: start: 20110730, end: 20110801
  4. FEIBA FOR INJECTION 1000 [Suspect]
     Route: 042
     Dates: start: 20110803, end: 20110807
  5. FEIBA FOR INJECTION 1000 [Suspect]
     Route: 042
     Dates: start: 20110819, end: 20110822
  6. FEIBA FOR INJECTION 1000 [Suspect]
     Route: 042
     Dates: start: 20110824, end: 20110827
  7. FEIBA FOR INJECTION 1000 [Suspect]
     Route: 042
     Dates: start: 20110908, end: 20110914
  8. FEIBA FOR INJECTION 1000 [Suspect]
     Route: 042
     Dates: start: 20110916, end: 20110916
  9. FEIBA FOR INJECTION 1000 [Suspect]
     Route: 042
     Dates: start: 20110918, end: 20110918
  10. NOVOSEVEN [Concomitant]
     Indication: HAEMORRHAGE
     Route: 042
     Dates: start: 20110717, end: 20110717

REACTIONS (1)
  - Drug ineffective [Unknown]
